FAERS Safety Report 13474213 (Version 2)
Quarter: 2017Q2

REPORT INFORMATION
  Report Type: Report from Study
  Country: VE (occurrence: VE)
  Receive Date: 20170424
  Receipt Date: 20170522
  Transmission Date: 20170830
  Serious: Yes (Other)
  Sender: FDA-Public Use
  Company Number: PHHY2010VE22101

PATIENT
  Age: 28 Year
  Sex: Male

DRUGS (3)
  1. AFINITOR [Suspect]
     Active Substance: EVEROLIMUS
     Indication: PANCREATIC NEUROENDOCRINE TUMOUR
     Dosage: 10 MG, QD
     Route: 048
     Dates: start: 20110810
  2. SANDOSTATIN LAR DEPOT [Suspect]
     Active Substance: OCTREOTIDE ACETATE
     Indication: GASTROENTEROPANCREATIC NEUROENDOCRINE TUMOUR DISEASE
     Dosage: 20 MG, QMO
     Route: 065
     Dates: start: 20080405
  3. SANDOSTATIN LAR DEPOT [Suspect]
     Active Substance: OCTREOTIDE ACETATE
     Dosage: 20 MG, QMO
     Route: 065
     Dates: start: 20110602, end: 201611

REACTIONS (5)
  - Drug ineffective [Unknown]
  - Malaise [Unknown]
  - Pain [Unknown]
  - Vomiting [Unknown]
  - Hypoglycaemic seizure [Unknown]

NARRATIVE: CASE EVENT DATE: 201702
